FAERS Safety Report 4996034-9 (Version None)
Quarter: 2006Q2

REPORT INFORMATION
  Report Type: 
  Country: None (occurrence: None)
  Receive Date: 20060504
  Receipt Date: 20060418
  Transmission Date: 20061013
  Serious: Yes (Death)
  Sender: FDA-Public Use
  Company Number: 224027

PATIENT
  Age: 59 Year
  Sex: Male

DRUGS (6)
  1. AVASTIN [Suspect]
     Indication: COLORECTAL CANCER METASTATIC
     Dosage: 555 MG, Q3W, INTRAVENOUS
     Route: 042
     Dates: start: 20051228
  2. ENOXAPARIN SODIUM [Suspect]
     Indication: DEEP VEIN THROMBOSIS
     Dosage: 40 MG
     Dates: start: 20060228, end: 20060315
  3. FLUOROURACIL [Concomitant]
  4. IRINOTECAN HCL [Concomitant]
  5. LEUCOVORIN CALCIUM [Concomitant]
  6. CAPTOPRIL [Concomitant]

REACTIONS (7)
  - BLOOD GLUCOSE INCREASED [None]
  - CREATININE RENAL CLEARANCE DECREASED [None]
  - DEEP VEIN THROMBOSIS [None]
  - GASTROINTESTINAL HAEMORRHAGE [None]
  - HAEMATOCRIT DECREASED [None]
  - HAEMOGLOBIN DECREASED [None]
  - PLATELET COUNT DECREASED [None]
